FAERS Safety Report 18903257 (Version 1)
Quarter: 2021Q1

REPORT INFORMATION
  Report Type: Spontaneous
  Country: US (occurrence: US)
  Receive Date: 20210217
  Receipt Date: 20210217
  Transmission Date: 20210420
  Serious: No
  Sender: FDA-Public Use
  Company Number: US-ASTRAZENECA-2021A045541

PATIENT
  Sex: Female
  Weight: 81.6 kg

DRUGS (3)
  1. BREO ELLIPTA [Concomitant]
     Active Substance: FLUTICASONE FUROATE\VILANTEROL TRIFENATATE
  2. BREZTRI [Suspect]
     Active Substance: BUDESONIDE\FORMOTEROL\GLYCOPYRRONIUM
     Indication: CHRONIC OBSTRUCTIVE PULMONARY DISEASE
     Dosage: 160/9/4.8MCG 2 PUFFS
     Route: 055
     Dates: start: 20210202
  3. BREZTRI [Suspect]
     Active Substance: BUDESONIDE\FORMOTEROL\GLYCOPYRRONIUM
     Indication: EMPHYSEMA
     Dosage: 160/9/4.8MCG 2 PUFFS
     Route: 055
     Dates: start: 20210202

REACTIONS (7)
  - Abdominal pain upper [Unknown]
  - Gastric disorder [Unknown]
  - Product dose omission issue [Unknown]
  - Influenza [Unknown]
  - Pain [Unknown]
  - Illness [Unknown]
  - Muscle spasms [Unknown]
